FAERS Safety Report 13245418 (Version 11)
Quarter: 2018Q3

REPORT INFORMATION
  Report Type: Report from Study
  Country: AR (occurrence: AR)
  Receive Date: 20170217
  Receipt Date: 20180718
  Transmission Date: 20181010
  Serious: Yes (Hospitalization)
  Sender: FDA-Public Use
  Company Number: AR-ROCHE-1891394

PATIENT
  Age: 31 Year
  Sex: Female
  Weight: 87.5 kg

DRUGS (84)
  1. ENALAPRIL [Concomitant]
     Active Substance: ENALAPRIL
     Route: 048
     Dates: start: 20170120, end: 20170208
  2. FUROSEMIDE. [Concomitant]
     Active Substance: FUROSEMIDE
     Indication: LUPUS NEPHRITIS
     Route: 048
     Dates: start: 20161012, end: 20170112
  3. FUROSEMIDE. [Concomitant]
     Active Substance: FUROSEMIDE
     Route: 042
     Dates: start: 20170212, end: 20170219
  4. DIPHENHYDRAMINE. [Concomitant]
     Active Substance: DIPHENHYDRAMINE
     Route: 042
     Dates: start: 20170214, end: 20170214
  5. SILVER SULFADIAZINE. [Concomitant]
     Active Substance: SILVER SULFADIAZINE
     Route: 061
     Dates: start: 20170213, end: 20170508
  6. ACETAMINOPHEN. [Concomitant]
     Active Substance: ACETAMINOPHEN
     Route: 048
     Dates: start: 20161213, end: 20170126
  7. FUROSEMIDE. [Concomitant]
     Active Substance: FUROSEMIDE
     Route: 042
     Dates: start: 20170211, end: 20170211
  8. FUROSEMIDE. [Concomitant]
     Active Substance: FUROSEMIDE
     Route: 042
     Dates: start: 20170212, end: 20170212
  9. ZOLPIDEM [Concomitant]
     Active Substance: ZOLPIDEM\ZOLPIDEM TARTRATE
     Route: 048
     Dates: start: 20160102, end: 20170125
  10. CALCIUM CARBONATE. [Concomitant]
     Active Substance: CALCIUM CARBONATE
     Route: 048
     Dates: start: 20170119, end: 20170729
  11. IVERMECTINE [Concomitant]
     Route: 048
     Dates: start: 20170123, end: 20170123
  12. CODEINE [Concomitant]
     Active Substance: CODEINE
     Route: 048
     Dates: start: 20170210
  13. CEFEPIME [Concomitant]
     Active Substance: CEFEPIME HYDROCHLORIDE
     Route: 042
     Dates: start: 20170228, end: 20170306
  14. FILGRASTIM [Concomitant]
     Active Substance: FILGRASTIM
     Indication: NEUTROPENIA
     Route: 058
     Dates: start: 20170221, end: 20170302
  15. LORAZEPAM. [Concomitant]
     Active Substance: LORAZEPAM
     Route: 048
     Dates: start: 20170209, end: 20170209
  16. MEROPENEM. [Concomitant]
     Active Substance: MEROPENEM
     Indication: LUPUS NEPHRITIS
     Route: 042
     Dates: start: 20170228
  17. MYCOPHENOLATE MOFETIL. [Suspect]
     Active Substance: MYCOPHENOLATE MOFETIL
     Indication: LUPUS NEPHRITIS
     Dosage: MOST RECENT DOSE PRIOR TO SAE: 2000 MG ON 18/JAN/2017
     Route: 048
     Dates: start: 20161101
  18. FUROSEMIDE. [Concomitant]
     Active Substance: FUROSEMIDE
     Route: 042
     Dates: start: 20170221, end: 20170226
  19. FUROSEMIDE. [Concomitant]
     Active Substance: FUROSEMIDE
     Route: 042
     Dates: start: 20170213, end: 20170213
  20. FUROSEMIDE. [Concomitant]
     Active Substance: FUROSEMIDE
     Route: 042
     Dates: start: 20170218, end: 20170218
  21. FUROSEMIDE. [Concomitant]
     Active Substance: FUROSEMIDE
     Route: 042
     Dates: start: 20170210, end: 20170210
  22. FUROSEMIDE. [Concomitant]
     Active Substance: FUROSEMIDE
     Route: 042
     Dates: start: 20170219, end: 20170220
  23. SODIUM HEPARIN [Concomitant]
     Active Substance: HEPARIN SODIUM
     Route: 058
     Dates: start: 20170118, end: 20170125
  24. ALBUMIN [Concomitant]
     Active Substance: ALBUMIN HUMAN
     Route: 042
     Dates: start: 20170210, end: 20170222
  25. CALCIPARINE [Concomitant]
     Active Substance: HEPARIN CALCIUM
     Route: 058
     Dates: start: 20170224, end: 20170308
  26. DIPHENHYDRAMINE. [Concomitant]
     Active Substance: DIPHENHYDRAMINE
     Route: 048
     Dates: start: 20170215, end: 20170215
  27. SOLU?MEDROL [Concomitant]
     Active Substance: METHYLPREDNISOLONE SODIUM SUCCINATE
     Indication: LUPUS NEPHRITIS
     Dosage: 3 PULSES
     Route: 042
     Dates: start: 20170221, end: 20170223
  28. FLUCONAZOL [Concomitant]
     Active Substance: FLUCONAZOLE
     Indication: LUPUS NEPHRITIS
     Route: 042
     Dates: start: 20170224, end: 20170228
  29. ACETAMINOPHEN. [Concomitant]
     Active Substance: ACETAMINOPHEN
     Route: 048
     Dates: start: 20170210
  30. ENALAPRIL [Concomitant]
     Active Substance: ENALAPRIL
     Route: 048
     Dates: start: 20170209, end: 20170209
  31. FUROSEMIDE. [Concomitant]
     Active Substance: FUROSEMIDE
     Route: 048
     Dates: start: 20170113, end: 20170121
  32. FUROSEMIDE. [Concomitant]
     Active Substance: FUROSEMIDE
     Route: 042
     Dates: start: 20170122, end: 20170125
  33. FUROSEMIDE. [Concomitant]
     Active Substance: FUROSEMIDE
     Route: 042
     Dates: start: 20170219, end: 20170222
  34. FUROSEMIDE. [Concomitant]
     Active Substance: FUROSEMIDE
     Route: 042
     Dates: start: 20170218, end: 20170218
  35. ALPRAZOLAM. [Concomitant]
     Active Substance: ALPRAZOLAM
     Route: 048
     Dates: start: 20161226, end: 20170208
  36. ATORVASTATIN [Concomitant]
     Active Substance: ATORVASTATIN
     Indication: LUPUS NEPHRITIS
     Route: 048
     Dates: start: 20170118, end: 20170118
  37. ALBUMIN [Concomitant]
     Active Substance: ALBUMIN HUMAN
     Indication: LUPUS NEPHRITIS
     Route: 042
     Dates: start: 20170122, end: 20170125
  38. METOCLOPRAMIDE. [Concomitant]
     Active Substance: METOCLOPRAMIDE
     Route: 042
     Dates: start: 20170225, end: 20170305
  39. PLACEBO [Suspect]
     Active Substance: UNSPECIFIED INGREDIENT
     Route: 042
     Dates: start: 20170221, end: 20170223
  40. PANTOPRAZOLE [Concomitant]
     Active Substance: PANTOPRAZOLE
     Route: 048
     Dates: start: 20161115, end: 20170118
  41. FUROSEMIDE. [Concomitant]
     Active Substance: FUROSEMIDE
     Route: 042
     Dates: start: 20170118, end: 20170119
  42. FUROSEMIDE. [Concomitant]
     Active Substance: FUROSEMIDE
     Route: 042
     Dates: start: 20170227, end: 20170308
  43. FUROSEMIDE. [Concomitant]
     Active Substance: FUROSEMIDE
     Route: 042
     Dates: start: 20170221, end: 20170226
  44. PREDNISONE. [Concomitant]
     Active Substance: PREDNISONE
     Indication: LUPUS NEPHRITIS
     Route: 048
     Dates: start: 20161227, end: 20170117
  45. TEICOPLANIN [Concomitant]
     Active Substance: TEICOPLANIN
     Route: 042
     Dates: start: 20170213
  46. LEUCOVORINE [Concomitant]
     Active Substance: LEUCOVORIN
     Indication: LUPUS NEPHRITIS
     Route: 042
     Dates: start: 20170223, end: 20170302
  47. PLACEBO [Suspect]
     Active Substance: UNSPECIFIED INGREDIENT
     Indication: LUPUS NEPHRITIS
     Dosage: DATE OF MOST RECENT DOSE ON 26/DEC/2016 AT 10:30.
     Route: 042
     Dates: start: 20161212
  48. PREDNISONE. [Concomitant]
     Active Substance: PREDNISONE
     Route: 048
     Dates: start: 20170118, end: 20170528
  49. SODIUM CHLORIDE. [Concomitant]
     Active Substance: SODIUM CHLORIDE
     Route: 042
     Dates: start: 20170117, end: 20170117
  50. OMEPRAZOLE. [Concomitant]
     Active Substance: OMEPRAZOLE
     Route: 048
     Dates: start: 20170209, end: 20170216
  51. CODEINE [Concomitant]
     Active Substance: CODEINE
     Route: 048
     Dates: start: 20170209, end: 20170301
  52. TEICOPLANIN [Concomitant]
     Active Substance: TEICOPLANIN
     Route: 042
     Dates: start: 20170210, end: 20170213
  53. RANITIDINE. [Concomitant]
     Active Substance: RANITIDINE
     Route: 048
     Dates: start: 20170217, end: 20170729
  54. LORAZEPAM. [Concomitant]
     Active Substance: LORAZEPAM
     Route: 060
     Dates: start: 20170210, end: 20170729
  55. PENTOXIFILINA [Concomitant]
     Active Substance: PENTOXIFYLLINE
     Indication: LUPUS NEPHRITIS
     Route: 048
     Dates: start: 20170219, end: 20170308
  56. DAPTOMYCIN. [Concomitant]
     Active Substance: DAPTOMYCIN
     Indication: LUPUS NEPHRITIS
     Route: 042
     Dates: start: 20170224, end: 20170303
  57. ENALAPRIL [Concomitant]
     Active Substance: ENALAPRIL
     Indication: LUPUS NEPHRITIS
     Route: 048
     Dates: start: 2010, end: 20170119
  58. FUROSEMIDE. [Concomitant]
     Active Substance: FUROSEMIDE
     Route: 042
     Dates: start: 20170224
  59. FUROSEMIDE. [Concomitant]
     Active Substance: FUROSEMIDE
     Route: 042
     Dates: start: 20170213, end: 20170217
  60. VANCOMICINA [Concomitant]
     Active Substance: VANCOMYCIN
     Route: 042
     Dates: start: 20170120, end: 20170128
  61. CALCIUM CARBONATE. [Concomitant]
     Active Substance: CALCIUM CARBONATE
     Indication: LUPUS NEPHRITIS
     Route: 048
     Dates: start: 20170118, end: 20170119
  62. CALCIPARINE [Concomitant]
     Active Substance: HEPARIN CALCIUM
     Indication: LUPUS NEPHRITIS
     Route: 058
     Dates: start: 20170208, end: 20170210
  63. AMLODIPINE [Concomitant]
     Active Substance: AMLODIPINE BESYLATE
     Indication: LUPUS NEPHRITIS
     Route: 048
     Dates: start: 20170209, end: 20170319
  64. CLOBETASOL [Concomitant]
     Active Substance: CLOBETASOL
     Route: 061
     Dates: start: 20170209, end: 20170222
  65. DIPHENHYDRAMINE. [Concomitant]
     Active Substance: DIPHENHYDRAMINE
     Route: 048
     Dates: start: 20170211, end: 20170211
  66. SULFAMETHOXAZOLE/TRIMETHOPRIM [Concomitant]
     Active Substance: SULFAMETHOXAZOLE\TRIMETHOPRIM
     Route: 048
     Dates: start: 20170209, end: 20170222
  67. POTASSIUM CHLORIDE. [Concomitant]
     Active Substance: POTASSIUM CHLORIDE
     Indication: LUPUS NEPHRITIS
     Route: 048
     Dates: start: 20170215, end: 20170219
  68. PLACEBO [Suspect]
     Active Substance: UNSPECIFIED INGREDIENT
     Indication: LUPUS NEPHRITIS
     Dosage: DATE OF MOST RECENT DOSE ON 26/DEC/2016 AT 10:00
     Route: 042
     Dates: start: 20161212
  69. FUROSEMIDE. [Concomitant]
     Active Substance: FUROSEMIDE
     Route: 048
     Dates: start: 20170120, end: 20170210
  70. FUROSEMIDE. [Concomitant]
     Active Substance: FUROSEMIDE
     Route: 048
     Dates: start: 20170126
  71. FUROSEMIDE. [Concomitant]
     Active Substance: FUROSEMIDE
     Route: 042
     Dates: start: 20170211, end: 20170212
  72. AZITHROMYCIN ANHYDROUS. [Concomitant]
     Active Substance: AZITHROMYCIN ANHYDROUS
     Route: 048
     Dates: start: 20170109, end: 20170113
  73. OMEPRAZOLE. [Concomitant]
     Active Substance: OMEPRAZOLE
     Route: 048
     Dates: start: 20170118, end: 20170208
  74. ATORVASTATIN [Concomitant]
     Active Substance: ATORVASTATIN
     Route: 048
     Dates: start: 20170119, end: 20170125
  75. ATORVASTATIN [Concomitant]
     Active Substance: ATORVASTATIN
     Route: 048
     Dates: start: 20170126, end: 20170729
  76. ALLOPURINOL. [Concomitant]
     Active Substance: ALLOPURINOL
     Indication: LUPUS NEPHRITIS
     Route: 048
     Dates: start: 20170119, end: 20170125
  77. ISONIAZID. [Concomitant]
     Active Substance: ISONIAZID
     Route: 048
     Dates: start: 20170124, end: 20170206
  78. MORPHINE [Concomitant]
     Active Substance: MORPHINE
     Route: 042
     Dates: start: 20170209, end: 20170209
  79. CEFEPIME [Concomitant]
     Active Substance: CEFEPIME HYDROCHLORIDE
     Indication: LUPUS NEPHRITIS
     Route: 042
     Dates: start: 20170211
  80. CEFEPIME [Concomitant]
     Active Substance: CEFEPIME HYDROCHLORIDE
     Route: 042
     Dates: start: 20170210, end: 20170213
  81. MAGNESIUM CITRATE. [Concomitant]
     Active Substance: MAGNESIUM CITRATE
     Indication: LUPUS NEPHRITIS
     Route: 048
     Dates: start: 20170213, end: 20170305
  82. POTASSIUM CHLORIDE. [Concomitant]
     Active Substance: POTASSIUM CHLORIDE
     Route: 048
     Dates: start: 20170220, end: 20170221
  83. METOCLOPRAMIDE. [Concomitant]
     Active Substance: METOCLOPRAMIDE
     Indication: LUPUS NEPHRITIS
     Route: 042
     Dates: start: 20170222, end: 20170222
  84. PLACEBO [Suspect]
     Active Substance: UNSPECIFIED INGREDIENT
     Route: 042
     Dates: start: 20170124, end: 20170125

REACTIONS (1)
  - Herpes zoster [Recovered/Resolved]

NARRATIVE: CASE EVENT DATE: 20170208
